FAERS Safety Report 25153828 (Version 1)
Quarter: 2025Q2

REPORT INFORMATION
  Report Type: Spontaneous
  Country: FR (occurrence: FR)
  Receive Date: 20250403
  Receipt Date: 20250403
  Transmission Date: 20250717
  Serious: Yes (Other)
  Sender: ORGANON
  Company Number: FR-BRISTOL-MYERS SQUIBB COMPANY-2025-024708

PATIENT
  Age: 76 Year
  Sex: Female
  Weight: 62 kg

DRUGS (6)
  1. LIPTRUZET [Suspect]
     Active Substance: ATORVASTATIN CALCIUM\EZETIMIBE
     Indication: Blood cholesterol
  2. ELIQUIS [Suspect]
     Active Substance: APIXABAN
     Indication: Pulmonary embolism
     Dosage: 10 MILLIGRAM, BID (0.5 DAY)
     Route: 048
     Dates: start: 20240305
  3. ELIQUIS [Suspect]
     Active Substance: APIXABAN
     Dosage: 5 MILLIGRAM, BID (0.5 DAY)
     Route: 048
     Dates: start: 202403
  4. FLECAINIDE [Concomitant]
     Active Substance: FLECAINIDE
     Indication: Heart rate increased
  5. EZETIMIBE BIOGARAN [Concomitant]
     Indication: Blood cholesterol increased
  6. ESOMEPRAZOLE [Concomitant]
     Active Substance: ESOMEPRAZOLE
     Indication: Helicobacter gastritis

REACTIONS (11)
  - Parkinson^s disease [Unknown]
  - Musculoskeletal stiffness [Not Recovered/Not Resolved]
  - Myalgia [Not Recovered/Not Resolved]
  - Blood creatine phosphokinase increased [Unknown]
  - Decreased activity [Unknown]
  - Memory impairment [Unknown]
  - Extrasystoles [Unknown]
  - Sleep apnoea syndrome [Unknown]
  - Balance disorder [Unknown]
  - Dyspnoea [Not Recovered/Not Resolved]
  - Tachycardia [Not Recovered/Not Resolved]
